FAERS Safety Report 7247085-5 (Version None)
Quarter: 2011Q1

REPORT INFORMATION
  Report Type: 
  Country: None (occurrence: None)
  Receive Date: 20110127
  Receipt Date: 20100113
  Transmission Date: 20110831
  Serious: No
  Sender: FDA-Public Use
  Company Number: US-BAUSCH-2010BL000219

PATIENT
  Age: 67 Year
  Sex: Female

DRUGS (2)
  1. ALAWAY [Suspect]
     Indication: SEASONAL ALLERGY
     Route: 047
     Dates: start: 20091001
  2. REFRESH [Concomitant]
     Route: 047

REACTIONS (1)
  - RASH [None]
